FAERS Safety Report 9407178 (Version 1)
Quarter: 2013Q3

REPORT INFORMATION
  Report Type: Spontaneous
  Country: US (occurrence: US)
  Receive Date: 20130718
  Receipt Date: 20130718
  Transmission Date: 20140515
  Serious: Yes (Hospitalization, Other)
  Sender: FDA-Public Use
  Company Number: US-ELI_LILLY_AND_COMPANY-US201307003518

PATIENT
  Sex: Female

DRUGS (2)
  1. HUMULIN NPH [Suspect]
     Indication: TYPE 1 DIABETES MELLITUS
     Dosage: 10 U, TID
  2. INSULIN HUMAN [Suspect]
     Indication: TYPE 1 DIABETES MELLITUS
     Dosage: 10 U, TID

REACTIONS (7)
  - Pre-eclampsia [Recovered/Resolved]
  - Blindness [Recovered/Resolved with Sequelae]
  - Exposure during pregnancy [Recovered/Resolved]
  - Diabetic retinopathy [Unknown]
  - Visual impairment [Not Recovered/Not Resolved]
  - Premature delivery [Recovered/Resolved]
  - Proteinuria [Recovered/Resolved]
